FAERS Safety Report 14943846 (Version 2)
Quarter: 2018Q2

REPORT INFORMATION
  Report Type: Spontaneous
  Country: US (occurrence: US)
  Receive Date: 20180528
  Receipt Date: 20180621
  Transmission Date: 20180711
  Serious: Yes (Other)
  Sender: FDA-Public Use
  Company Number: US-ASTRAZENECA-2018SE69843

PATIENT
  Age: 19 Year
  Sex: Male

DRUGS (2)
  1. NEXIUM 24HR CLEARMINIS [Suspect]
     Active Substance: ESOMEPRAZOLE MAGNESIUM
     Indication: MASTOCYTOSIS
     Route: 048
     Dates: start: 201804, end: 201805
  2. NEXIUM 24HR CLEARMINIS [Suspect]
     Active Substance: ESOMEPRAZOLE MAGNESIUM
     Indication: EOSINOPHILIC OESOPHAGITIS
     Route: 048

REACTIONS (5)
  - Nervous system disorder [Recovered/Resolved]
  - Paralysis [Recovered/Resolved]
  - Condition aggravated [Recovered/Resolved]
  - Mastocytosis [Recovered/Resolved]
  - Eosinophilic oesophagitis [Recovered/Resolved]

NARRATIVE: CASE EVENT DATE: 2018
